FAERS Safety Report 5472809-7 (Version None)
Quarter: 2007Q4

REPORT INFORMATION
  Report Type: 
  Country: None (occurrence: None)
  Receive Date: 20071001
  Receipt Date: 20061229
  Transmission Date: 20080405
  Serious: No
  Sender: FDA-Public Use
  Company Number: US-ASTRAZENECA-2007UW00042

PATIENT
  Age: 51 Year
  Sex: Female
  Weight: 72.7 kg

DRUGS (2)
  1. ARIMIDEX [Suspect]
     Indication: BREAST CANCER
     Route: 048
     Dates: end: 20050601
  2. TAMOXIFEN CITRATE [Concomitant]

REACTIONS (1)
  - MENSTRUATION IRREGULAR [None]
